FAERS Safety Report 23062331 (Version 1)
Quarter: 2023Q4

REPORT INFORMATION
  Report Type: Spontaneous
  Country: US (occurrence: US)
  Receive Date: 20231013
  Receipt Date: 20231013
  Transmission Date: 20240109
  Serious: No
  Sender: FDA-Public Use
  Company Number: US-SHIELD THERAPEUTICS-US-STX-23-00059

PATIENT
  Age: 42 Year
  Sex: Female

DRUGS (4)
  1. ACCRUFER [Suspect]
     Active Substance: FERRIC MALTOL
     Indication: Iron deficiency
     Dosage: 30 MILLIGRAM, 1 CAPSULE BY MOUTH TWICE DAILY
     Route: 048
     Dates: start: 20230607, end: 20230730
  2. LYSINE [Concomitant]
     Active Substance: LYSINE
     Indication: Product used for unknown indication
     Dosage: UNK, UNK
     Route: 065
  3. ESOMEPRAZOLE SODIUM [Concomitant]
     Active Substance: ESOMEPRAZOLE SODIUM
     Indication: Product used for unknown indication
     Dosage: UNK, UNK
     Route: 065
  4. PROBIOTIC FORMULA [Concomitant]
     Indication: Product used for unknown indication
     Dosage: UNK, UNK
     Route: 065

REACTIONS (1)
  - Constipation [Unknown]
